FAERS Safety Report 5273398-2 (Version None)
Quarter: 2007Q1

REPORT INFORMATION
  Report Type: 
  Country: None (occurrence: None)
  Receive Date: 20070320
  Receipt Date: 20070305
  Transmission Date: 20070707
  Serious: Yes (Hospitalization)
  Sender: FDA-Public Use
  Company Number: 2007S1000174

PATIENT
  Sex: Female

DRUGS (1)
  1. CUBICIN [Suspect]
     Indication: OSTEOMYELITIS

REACTIONS (2)
  - ACUTE RESPIRATORY FAILURE [None]
  - LUNG INFILTRATION [None]
